FAERS Safety Report 13080147 (Version 2)
Quarter: 2017Q1

REPORT INFORMATION
  Report Type: Spontaneous
  Country: IT (occurrence: IT)
  Receive Date: 20170103
  Receipt Date: 20170216
  Transmission Date: 20170428
  Serious: Yes (Hospitalization)
  Sender: FDA-Public Use
  Company Number: IT-PFIZER INC-2016597403

PATIENT
  Age: 27 Year
  Sex: Male

DRUGS (6)
  1. METHADONE HYDROCHLORIDE. [Suspect]
     Active Substance: METHADONE HYDROCHLORIDE
     Dosage: UNK
  2. SODIUM VALPROATE [Interacting]
     Active Substance: VALPROATE SODIUM
     Dosage: UNK
  3. ZOLPIDEM TARTRATE. [Suspect]
     Active Substance: ZOLPIDEM TARTRATE
     Dosage: UNK
  4. LORAZEPAM. [Suspect]
     Active Substance: LORAZEPAM
     Dosage: UNK
  5. SERTRALINE HCL [Suspect]
     Active Substance: SERTRALINE HYDROCHLORIDE
     Dosage: UNK
  6. LAMOTRIGINE. [Interacting]
     Active Substance: LAMOTRIGINE
     Dosage: UNK

REACTIONS (6)
  - Drug abuse [Unknown]
  - Product use issue [Unknown]
  - Self-medication [Unknown]
  - Drug interaction [Unknown]
  - Somnolence [Unknown]
  - Treatment noncompliance [Unknown]
